FAERS Safety Report 8857931 (Version 1)
Quarter: 2012Q4

REPORT INFORMATION
  Report Type: 
  Country: US (occurrence: US)
  Receive Date: 20121024
  Receipt Date: 20121024
  Transmission Date: 20130627
  Serious: No
  Sender: FDA-Public Use
  Company Number: US-AMGEN-USASP2012003288

PATIENT
  Sex: Male

DRUGS (6)
  1. ENBREL [Suspect]
     Indication: PRODUCT USED FOR UNKNOWN INDICATION
     Dosage: 50 mg, qwk
     Route: 058
  2. OMEPRAZOLE [Concomitant]
     Dosage: 20 mg, UNK
     Route: 048
  3. TRAMADOL /00599202/ [Concomitant]
     Dosage: 50 mg, UNK
     Route: 048
  4. GABAPENTIN [Concomitant]
     Dosage: 100 mg, UNK
     Route: 048
  5. VITAMIN B COMPLEX [Concomitant]
     Dosage: UNK
     Route: 048
  6. FLUOXETIN [Concomitant]
     Dosage: 10 mg, UNK
     Route: 048

REACTIONS (1)
  - Weight decreased [Unknown]
